FAERS Safety Report 5570619-3 (Version None)
Quarter: 2007Q4

REPORT INFORMATION
  Report Type: 
  Country: None (occurrence: None)
  Receive Date: 20071221
  Receipt Date: 20071214
  Transmission Date: 20080405
  Serious: Yes (Hospitalization)
  Sender: FDA-Public Use
  Company Number: US-JNJFOC-20071204577

PATIENT
  Sex: Male

DRUGS (2)
  1. FENTANYL TRANSDERMAL SYSTEM [Suspect]
     Indication: PAIN
     Route: 062
  2. MORPHINE [Suspect]
     Indication: PAIN
     Route: 042

REACTIONS (2)
  - HOSPITALISATION [None]
  - INADEQUATE ANALGESIA [None]
